FAERS Safety Report 10243286 (Version 13)
Quarter: 2017Q1

REPORT INFORMATION
  Report Type: Report from Study
  Country: GB (occurrence: GB)
  Receive Date: 20140618
  Receipt Date: 20170313
  Transmission Date: 20170428
  Serious: Yes (Hospitalization, Other)
  Sender: FDA-Public Use
  Company Number: PHHY2014GB073171

PATIENT
  Age: 51 Year
  Sex: Male
  Weight: 72 kg

DRUGS (4)
  1. AFINITOR [Suspect]
     Active Substance: EVEROLIMUS
     Indication: PANCREATIC NEUROENDOCRINE TUMOUR
     Dosage: 10 MG, UNK
     Route: 048
     Dates: start: 20140613, end: 20151223
  2. OCTREOTIDE. [Suspect]
     Active Substance: OCTREOTIDE
     Indication: PRODUCT USED FOR UNKNOWN INDICATION
     Dosage: 30 MG, EVERY 28 DAYS
     Route: 030
     Dates: start: 201104
  3. CHLORDIAZEPOXIDE. [Concomitant]
     Active Substance: CHLORDIAZEPOXIDE
     Indication: ALCOHOL ABUSE
     Dosage: 100 MG, UNK
     Route: 048
     Dates: start: 20140609, end: 20140609
  4. PABRINEX [Concomitant]
     Indication: ALCOHOL ABUSE
     Dosage: UNK
     Route: 042
     Dates: start: 20140608, end: 20140610

REACTIONS (39)
  - Malignant neoplasm progression [Unknown]
  - Pain in extremity [Not Recovered/Not Resolved]
  - Nasopharyngitis [Recovered/Resolved]
  - Abdominal pain [Not Recovered/Not Resolved]
  - Abdominal pain [Recovered/Resolved]
  - Pyrexia [Recovered/Resolved]
  - Alanine aminotransferase increased [Recovered/Resolved]
  - Palmar-plantar erythrodysaesthesia syndrome [Recovered/Resolved]
  - Productive cough [Recovered/Resolved]
  - Weight decreased [Recovered/Resolved]
  - Diarrhoea [Recovered/Resolved]
  - Lower respiratory tract infection [Unknown]
  - Blister [Recovered/Resolved]
  - Periorbital oedema [Recovered/Resolved]
  - Arthralgia [Recovered/Resolved]
  - Mouth ulceration [Unknown]
  - Gamma-glutamyltransferase increased [Unknown]
  - Blood potassium decreased [Recovered/Resolved]
  - Lower respiratory tract infection [Recovered/Resolved]
  - Dehydration [Unknown]
  - Gamma-glutamyltransferase increased [Recovered/Resolved]
  - Skin exfoliation [Recovered/Resolved]
  - Productive cough [Recovered/Resolved]
  - Diarrhoea [Recovered/Resolved]
  - Diarrhoea [Recovering/Resolving]
  - Platelet count decreased [Recovered/Resolved]
  - Depression [Recovered/Resolved]
  - Rhinitis [Recovered/Resolved]
  - Seizure [Recovered/Resolved]
  - Periorbital oedema [Recovered/Resolved]
  - Tongue ulceration [Recovered/Resolved]
  - Blood alkaline phosphatase increased [Unknown]
  - Blood glucose increased [Not Recovered/Not Resolved]
  - Pyrexia [Recovered/Resolved]
  - Rash [Recovered/Resolved]
  - Upper respiratory tract infection [Recovered/Resolved]
  - Influenza like illness [Recovered/Resolved]
  - Abdominal pain [Recovered/Resolved]
  - Abdominal pain [Recovered/Resolved]

NARRATIVE: CASE EVENT DATE: 2014
